FAERS Safety Report 10201098 (Version 1)
Quarter: 2014Q2

REPORT INFORMATION
  Report Type: Spontaneous
  Country: US (occurrence: US)
  Receive Date: 20140528
  Receipt Date: 20140528
  Transmission Date: 20141212
  Serious: Yes (Death)
  Sender: FDA-Public Use
  Company Number: US-NOVOPROD-410901

PATIENT
  Age: 34 Year
  Sex: Female
  Weight: 122.45 kg

DRUGS (1)
  1. NORDITROPIN FLEXPRO 10 MG/ML [Suspect]
     Indication: DWARFISM
     Dosage: 0.4MG DAILY
     Route: 058
     Dates: start: 201311

REACTIONS (1)
  - Cardiac arrest [Fatal]
